FAERS Safety Report 6851511-0 (Version None)
Quarter: 2010Q3

REPORT INFORMATION
  Report Type: 
  Country: None (occurrence: None)
  Receive Date: 20100717
  Receipt Date: 20080119
  Transmission Date: 20110219
  Serious: No
  Sender: FDA-Public Use
  Company Number: US-PFIZER INC-2008006685

PATIENT
  Sex: Female
  Weight: 75 kg

DRUGS (5)
  1. CHANTIX [Suspect]
     Indication: SMOKING CESSATION THERAPY
     Dates: start: 20080108
  2. SYNTHROID [Concomitant]
     Indication: HYPERTHYROIDISM
  3. CELEXA [Concomitant]
     Indication: DEPRESSION
  4. TRAZODONE HYDROCHLORIDE [Concomitant]
     Indication: SLEEP DISORDER
  5. XANAX [Concomitant]

REACTIONS (2)
  - NAUSEA [None]
  - VOMITING [None]
